FAERS Safety Report 17118720 (Version 2)
Quarter: 2019Q4

REPORT INFORMATION
  Report Type: Report from Study
  Country: KR (occurrence: KR)
  Receive Date: 20191206
  Receipt Date: 20191212
  Transmission Date: 20200122
  Serious: Yes (Hospitalization)
  Sender: FDA-Public Use
  Company Number: KR-ROCHE-2487337

PATIENT
  Age: 44 Year
  Sex: Female
  Weight: 45.5 kg

DRUGS (8)
  1. SALINE [SODIUM CHLORIDE] [Concomitant]
     Active Substance: SODIUM CHLORIDE
     Route: 065
     Dates: start: 20191126
  2. AUGMENTIN [Concomitant]
     Active Substance: AMOXICILLIN\CLAVULANATE POTASSIUM
     Dosage: 625 MG
     Route: 065
     Dates: start: 20191126
  3. PENIRAMIN [Concomitant]
     Route: 065
     Dates: start: 20191126, end: 20191126
  4. ESOMEPRAZOLE. [Concomitant]
     Active Substance: ESOMEPRAZOLE MAGNESIUM
     Route: 065
     Dates: start: 20191126
  5. TYLENOL 8HR [Concomitant]
     Active Substance: ACETAMINOPHEN
     Route: 065
     Dates: start: 20191125, end: 20191126
  6. MEBULATIN [Concomitant]
     Route: 065
     Dates: start: 20191124, end: 20191126
  7. ATEZOLIZUMAB. [Suspect]
     Active Substance: ATEZOLIZUMAB
     Indication: METASTASES TO LIVER
     Dosage: ON 12/NOV/2019, SHE RECEIVED LAST DOSE OF ATEZOLIZUMAB PRIOR TO AE.
     Route: 042
     Dates: start: 20191112
  8. TRIDOL [Concomitant]
     Active Substance: TRAMADOL HYDROCHLORIDE
     Route: 065
     Dates: start: 20191127, end: 20191129

REACTIONS (1)
  - Febrile neutropenia [Recovered/Resolved]

NARRATIVE: CASE EVENT DATE: 20191126
